FAERS Safety Report 11157792 (Version 1)
Quarter: 2015Q2

REPORT INFORMATION
  Report Type: Spontaneous
  Country: US (occurrence: None)
  Receive Date: 20150602
  Receipt Date: 20150602
  Transmission Date: 20150821
  Serious: Yes (Other)
  Sender: FDA-Public Use
  Company Number: None

PATIENT
  Age: 49 Year
  Sex: Female
  Weight: 62 kg

DRUGS (1)
  1. FERRLECIT [Suspect]
     Active Substance: SODIUM FERRIC GLUCONATE COMPLEX
     Indication: ANAEMIA
     Dates: start: 20150520, end: 20150520

REACTIONS (7)
  - Urticaria [None]
  - Documented hypersensitivity to administered product [None]
  - Pruritus [None]
  - Gait disturbance [None]
  - Throat irritation [None]
  - Peripheral swelling [None]
  - Product substitution issue [None]

NARRATIVE: CASE EVENT DATE: 20150520
